FAERS Safety Report 19396410 (Version 1)
Quarter: 2021Q2

REPORT INFORMATION
  Report Type: Spontaneous
  Country: US (occurrence: US)
  Receive Date: 20210610
  Receipt Date: 20210610
  Transmission Date: 20210717
  Serious: No
  Sender: FDA-Public Use
  Company Number: US-SA-2021SA191440

PATIENT
  Age: 37 Year
  Sex: Female

DRUGS (3)
  1. DUPIXENT [Suspect]
     Active Substance: DUPILUMAB
     Indication: DERMATITIS ATOPIC
     Dosage: 300 MG
     Route: 058
     Dates: start: 20210205
  2. LOTEPREDNOL [Concomitant]
     Active Substance: LOTEPREDNOL
     Indication: EYE PRURITUS
  3. LOTEPREDNOL [Concomitant]
     Active Substance: LOTEPREDNOL
     Indication: OCULAR HYPERAEMIA
     Route: 047

REACTIONS (1)
  - Intentional dose omission [Unknown]

NARRATIVE: CASE EVENT DATE: 2021
